FAERS Safety Report 9983164 (Version 2)
Quarter: 2014Q1

REPORT INFORMATION
  Report Type: Spontaneous
  Country: FR (occurrence: FR)
  Receive Date: 20140307
  Receipt Date: 20140307
  Transmission Date: 20141002
  Serious: Yes (Death, Hospitalization, Other)
  Sender: FDA-Public Use
  Company Number: FR-009507513-1002FRA00017

PATIENT
  Sex: Female

DRUGS (5)
  1. SINGULAIR [Suspect]
     Dosage: 14 DF,ONCE
     Route: 048
     Dates: start: 20091019, end: 20091019
  2. COLCHICINE [Suspect]
     Indication: APHTHOUS STOMATITIS
     Dosage: 40 MG, ONCE
     Route: 048
     Dates: start: 20091019, end: 20091019
  3. PIROXICAM [Suspect]
     Dosage: 5 DF, ONCE
     Route: 048
     Dates: start: 20091019, end: 20091019
  4. LOPERAMIDE HYDROCHLORIDE [Suspect]
     Dosage: 100 MG, ONCE
     Route: 048
     Dates: start: 20091019, end: 20091019
  5. DI-ANTALVIC [Suspect]
     Dosage: 6 DF,ONCE
     Route: 048
     Dates: start: 20091019, end: 20091019

REACTIONS (2)
  - Multi-organ failure [Fatal]
  - Toxicity to various agents [Fatal]
